FAERS Safety Report 6854143-3 (Version None)
Quarter: 2010Q3

REPORT INFORMATION
  Report Type: 
  Country: None (occurrence: None)
  Receive Date: 20100717
  Receipt Date: 20080205
  Transmission Date: 20110219
  Serious: No
  Sender: FDA-Public Use
  Company Number: US-PFIZER INC-2007102891

PATIENT
  Sex: Female
  Weight: 95.5 kg

DRUGS (11)
  1. CHANTIX [Suspect]
     Indication: SMOKING CESSATION THERAPY
     Dates: start: 20071101
  2. SEREVENT [Concomitant]
  3. MONTELUKAST SODIUM [Concomitant]
  4. ALBUTEROL [Concomitant]
  5. PROGESTERONE [Concomitant]
  6. DRUG, UNSPECIFIED [Concomitant]
  7. IBUPROFEN [Concomitant]
  8. VICODIN [Concomitant]
  9. VALIUM [Concomitant]
     Indication: INSOMNIA
  10. LIPITOR [Concomitant]
  11. ANXIOLYTICS [Concomitant]

REACTIONS (1)
  - TOBACCO USER [None]
